FAERS Safety Report 8009301-1 (Version None)
Quarter: 2011Q4

REPORT INFORMATION
  Report Type: 
  Country: None (occurrence: None)
  Receive Date: 20111227
  Receipt Date: 20111215
  Transmission Date: 20120403
  Serious: Yes (Other)
  Sender: FDA-Public Use
  Company Number: US-ASTRAZENECA-2011SE58023

PATIENT
  Age: 49 Year
  Sex: Male
  Weight: 86.2 kg

DRUGS (65)
  1. SEROQUEL [Suspect]
     Route: 048
  2. SEROQUEL [Suspect]
     Route: 048
  3. SEROQUEL [Suspect]
     Route: 048
     Dates: start: 20050101
  4. SEROQUEL [Suspect]
     Route: 048
     Dates: start: 20050101
  5. SEROQUEL [Suspect]
     Route: 048
     Dates: start: 20050101
  6. SEROQUEL [Suspect]
     Dosage: DAILY
     Route: 048
     Dates: start: 20060101
  7. SEROQUEL [Suspect]
     Route: 048
     Dates: start: 20010101
  8. SEROQUEL [Suspect]
     Dosage: 50 MG IN THE MORNING AND 100 MG IN THE EVENING
     Route: 048
  9. SEROQUEL [Suspect]
     Route: 048
     Dates: start: 20010101
  10. SEROQUEL [Suspect]
     Route: 048
  11. VICADIN [Concomitant]
     Indication: PAIN
     Route: 048
     Dates: start: 20030101
  12. PROZAC [Concomitant]
  13. SEROQUEL [Suspect]
     Indication: DEPRESSION
     Route: 048
  14. SEROQUEL [Suspect]
     Indication: PANIC ATTACK
     Route: 048
  15. SEROQUEL [Suspect]
     Dosage: 50 MG IN THE MORNING AND 100 MG IN THE EVENING
     Route: 048
  16. SEROQUEL [Suspect]
     Dosage: 50 MG IN THE MORNING AND 100 MG IN THE EVENING
     Route: 048
  17. SEROQUEL [Suspect]
     Dosage: 50 MG IN THE MORNING AND 100 MG IN THE EVENING
     Route: 048
  18. SEROQUEL [Suspect]
     Route: 048
     Dates: start: 20050101
  19. SEROQUEL [Suspect]
     Route: 048
     Dates: start: 20050101
  20. SEROQUEL [Suspect]
     Dosage: DAILY
     Route: 048
     Dates: start: 20060101
  21. SEROQUEL [Suspect]
     Route: 048
  22. SEROQUEL [Suspect]
     Dosage: AT NIGHT
     Route: 048
  23. LISINOPRIL [Concomitant]
     Indication: HYPERTENSION
     Route: 048
     Dates: start: 20030101
  24. CELEXA [Concomitant]
  25. SEROQUEL [Suspect]
     Indication: SOCIAL PHOBIA
     Route: 048
  26. SEROQUEL [Suspect]
     Dosage: 50 MG IN THE MORNING AND 100 MG IN THE EVENING
     Route: 048
  27. SEROQUEL [Suspect]
     Route: 048
  28. SEROQUEL [Suspect]
     Route: 048
  29. SEROQUEL [Suspect]
     Dosage: DAILY
     Route: 048
     Dates: start: 20060101
  30. SEROQUEL [Suspect]
     Route: 048
     Dates: start: 20010101
  31. SEROQUEL [Suspect]
     Route: 048
     Dates: start: 20010101
  32. SEROQUEL [Suspect]
     Route: 048
  33. SEROQUEL [Suspect]
     Route: 048
  34. SEROQUEL [Suspect]
     Dosage: 50 MG IN THE MORNING AND 100 MG IN THE EVENING
     Route: 048
  35. SEROQUEL [Suspect]
     Route: 048
     Dates: start: 20050101
  36. SEROQUEL [Suspect]
     Dosage: DAILY
     Route: 048
     Dates: start: 20060101
  37. SEROQUEL [Suspect]
     Dosage: DAILY
     Route: 048
     Dates: start: 20060101
  38. SEROQUEL [Suspect]
     Route: 048
  39. SEROQUEL [Suspect]
     Route: 048
  40. SEROQUEL [Suspect]
     Dosage: AT NIGHT
     Route: 048
  41. RISPERIDONE [Concomitant]
  42. SEROQUEL [Suspect]
     Indication: SCHIZOPHRENIA
     Route: 048
  43. SEROQUEL [Suspect]
     Indication: MAJOR DEPRESSION
     Route: 048
  44. SEROQUEL [Suspect]
     Indication: SUICIDAL IDEATION
     Route: 048
  45. SEROQUEL [Suspect]
     Dosage: 50 MG IN THE MORNING AND 100 MG IN THE EVENING
     Route: 048
  46. SEROQUEL [Suspect]
     Route: 048
  47. SEROQUEL [Suspect]
     Dosage: DAILY
     Route: 048
     Dates: start: 20060101
  48. SEROQUEL [Suspect]
     Dosage: AT NIGHT
     Route: 048
  49. SEROQUEL [Suspect]
     Dosage: AT NIGHT
     Route: 048
  50. XANEX [Concomitant]
     Indication: ANXIETY
     Route: 048
     Dates: start: 20030101
  51. SEROQUEL [Suspect]
     Indication: BIPOLAR DISORDER
     Route: 048
  52. SEROQUEL [Suspect]
     Route: 048
     Dates: start: 20010101
  53. SEROQUEL [Suspect]
     Dosage: AT NIGHT
     Route: 048
  54. XANEX [Concomitant]
     Indication: PANIC ATTACK
     Route: 048
     Dates: start: 20030101
  55. DEPAKOTE [Concomitant]
  56. SEROQUEL [Suspect]
     Route: 048
  57. SEROQUEL [Suspect]
     Route: 048
  58. SEROQUEL [Suspect]
     Route: 048
     Dates: start: 20050101
  59. SEROQUEL [Suspect]
     Dosage: DAILY
     Route: 048
     Dates: start: 20060101
  60. SEROQUEL [Suspect]
     Route: 048
     Dates: start: 20010101
  61. SEROQUEL [Suspect]
     Route: 048
     Dates: start: 20010101
  62. SEROQUEL [Suspect]
     Route: 048
  63. SEROQUEL [Suspect]
     Dosage: AT NIGHT
     Route: 048
  64. SEROQUEL [Suspect]
     Dosage: AT NIGHT
     Route: 048
  65. BICADINE [Concomitant]
     Indication: PAIN

REACTIONS (16)
  - INSOMNIA [None]
  - MENTAL DISORDER [None]
  - DRUG INEFFECTIVE [None]
  - HALLUCINATION, AUDITORY [None]
  - PSYCHIATRIC SYMPTOM [None]
  - NIGHTMARE [None]
  - SUICIDAL BEHAVIOUR [None]
  - WRONG TECHNIQUE IN DRUG USAGE PROCESS [None]
  - PYREXIA [None]
  - TACHYPHRENIA [None]
  - RESTLESSNESS [None]
  - DRUG DOSE OMISSION [None]
  - SUICIDAL IDEATION [None]
  - INFLUENZA [None]
  - FATIGUE [None]
  - OFF LABEL USE [None]
